FAERS Safety Report 25812480 (Version 1)
Quarter: 2025Q3

REPORT INFORMATION
  Report Type: Spontaneous
  Country: US (occurrence: None)
  Receive Date: 20250917
  Receipt Date: 20250917
  Transmission Date: 20251021
  Serious: Yes (Life-Threatening, Hospitalization)
  Sender: FDA-CTU
  Company Number: None

PATIENT
  Age: 52 Year
  Sex: Female
  Weight: 56.8 kg

DRUGS (13)
  1. CEFTRIAXONE [Suspect]
     Active Substance: CEFTRIAXONE
     Indication: Urinary tract infection
     Route: 042
     Dates: start: 20250912, end: 20250912
  2. Aripiprazole 2 mg QHS [Concomitant]
  3. Aspirin EC 81 mg QD [Concomitant]
  4. Atorvastatin 80 mg QD [Concomitant]
  5. Calcium Carbonate 1000 mg QD [Concomitant]
  6. Clopidogrel 75 mg QD [Concomitant]
  7. Ferrous Sulfate 325 QD [Concomitant]
  8. Folic Acid 1 mg QD [Concomitant]
  9. Levothyroxine 88 mcg QD [Concomitant]
  10. Metoprolol 100 mg QD [Concomitant]
  11. Phenytoin 100 mg TID [Concomitant]
  12. Docusate/Sennosides BID [Concomitant]
  13. Sodium Bicarbonate 650 mg BID [Concomitant]

REACTIONS (4)
  - Unresponsive to stimuli [None]
  - Hypotension [None]
  - Anaphylactic reaction [None]
  - Infusion related reaction [None]

NARRATIVE: CASE EVENT DATE: 20250912
